FAERS Safety Report 13869276 (Version 2)
Quarter: 2017Q4

REPORT INFORMATION
  Report Type: Spontaneous
  Country: US (occurrence: US)
  Receive Date: 20170815
  Receipt Date: 20171006
  Transmission Date: 20180320
  Serious: Yes (Other)
  Sender: FDA-Public Use
  Company Number: US-MYLANLABS-2017M1048643

PATIENT
  Weight: 63 kg

DRUGS (3)
  1. ATENOLOL. [Concomitant]
     Active Substance: ATENOLOL
     Indication: PRODUCT USED FOR UNKNOWN INDICATION
     Dosage: UNK
  2. WARFARIN [Concomitant]
     Active Substance: WARFARIN
     Indication: PRODUCT USED FOR UNKNOWN INDICATION
     Dosage: UNK
  3. HYDROCHLOROTHIAZIDE CAPSULES, USP [Suspect]
     Active Substance: HYDROCHLOROTHIAZIDE
     Indication: HYPERCALCIURIA
     Dosage: 1 DF, QD
     Route: 048
     Dates: start: 20170628, end: 20170630

REACTIONS (6)
  - Off label use [Unknown]
  - Cold sweat [Recovered/Resolved]
  - Malaise [Unknown]
  - Throat tightness [Unknown]
  - Syncope [Unknown]
  - Chest discomfort [Unknown]

NARRATIVE: CASE EVENT DATE: 20170629
